FAERS Safety Report 8958998 (Version 2)
Quarter: 2012Q4

REPORT INFORMATION
  Report Type: 
  Country: BR (occurrence: BR)
  Receive Date: 20121212
  Receipt Date: 20121214
  Transmission Date: 20130627
  Serious: Yes (Other)
  Sender: FDA-Public Use
  Company Number: PHHY2012BR113701

PATIENT
  Age: 41 Year
  Sex: Female
  Weight: 70 kg

DRUGS (7)
  1. GILENYA [Suspect]
     Indication: MULTIPLE SCLEROSIS
     Dosage: 0.5 mg, QD
     Route: 048
     Dates: start: 20121207
  2. BENZODIAZEPINES [Suspect]
  3. AMANTADINE HCL [Concomitant]
     Indication: TREMOR
     Dosage: 1 DF, UNK
     Dates: start: 2010
  4. RECONTER [Concomitant]
     Indication: DEPRESSION
     Dosage: 1 DF, UNK
  5. RETEMIC [Concomitant]
     Indication: NEUROGENIC BLADDER
     Dosage: 1 DF, UNK
  6. MACRODANTINA [Concomitant]
     Indication: URINARY TRACT INFECTION
     Dosage: 1 DF, daily
     Route: 048
  7. ROHYPNOL [Concomitant]
     Indication: SLEEP DISORDER
     Dosage: 1 DF, UNK

REACTIONS (4)
  - Blood pressure decreased [Recovered/Resolved]
  - Insomnia [Recovering/Resolving]
  - Musculoskeletal chest pain [Recovering/Resolving]
  - Heart rate decreased [Recovered/Resolved]
